FAERS Safety Report 6050896-5 (Version None)
Quarter: 2009Q1

REPORT INFORMATION
  Report Type: 
  Country: None (occurrence: None)
  Receive Date: 20090126
  Receipt Date: 20080512
  Transmission Date: 20090719
  Serious: No
  Sender: FDA-Public Use
  Company Number: US-TYCO HEALTHCARE/MALLINCKRODT-T200800826

PATIENT

DRUGS (3)
  1. OPTIRAY 300 [Suspect]
     Indication: COMPUTERISED TOMOGRAM
     Dosage: 100 ML (CC), SINGLE
     Route: 042
     Dates: start: 20080509, end: 20080509
  2. MEDROL [Concomitant]
     Indication: PREMEDICATION
     Dosage: 32 MG, SINGLE (12 HRS PRIOR TO SCAN)
     Route: 048
     Dates: start: 20080509, end: 20080509
  3. MEDROL [Concomitant]
     Dosage: 32 MG, SINGLE (2 HRS PRIOR TO SCAN)
     Route: 048
     Dates: start: 20080509, end: 20080509

REACTIONS (3)
  - CHEST DISCOMFORT [None]
  - COUGH [None]
  - WHEEZING [None]
